FAERS Safety Report 6456961-2 (Version None)
Quarter: 2009Q4

REPORT INFORMATION
  Report Type: 
  Country: None (occurrence: None)
  Receive Date: 20091125
  Receipt Date: 20091118
  Transmission Date: 20100525
  Serious: Yes (Hospitalization, Other)
  Sender: FDA-Public Use
  Company Number: US-JNJFOC-20091105554

PATIENT
  Sex: Male
  Weight: 43.09 kg

DRUGS (5)
  1. REMICADE [Suspect]
     Indication: CROHN'S DISEASE
     Route: 042
     Dates: start: 20070101
  2. ENTOCORT EC [Concomitant]
  3. METHOTREXATE [Concomitant]
  4. AZATHIOPRINE [Concomitant]
  5. COLAZAL [Concomitant]

REACTIONS (8)
  - ARTHRALGIA [None]
  - FATIGUE [None]
  - HOSPITALISATION [None]
  - NAUSEA [None]
  - PYREXIA [None]
  - SKIN LESION [None]
  - STAPHYLOCOCCAL INFECTION [None]
  - VOMITING [None]
